FAERS Safety Report 22654456 (Version 1)
Quarter: 2023Q2

REPORT INFORMATION
  Report Type: Spontaneous
  Country: PT (occurrence: PT)
  Receive Date: 20230629
  Receipt Date: 20230629
  Transmission Date: 20230721
  Serious: Yes (Other)
  Sender: FDA-Public Use
  Company Number: PT-SA-2023SA144653

PATIENT
  Age: 56 Year
  Sex: Male

DRUGS (18)
  1. QUETIAPINE FUMARATE [Suspect]
     Active Substance: QUETIAPINE FUMARATE
     Indication: Product used for unknown indication
     Dosage: UNK, (50 MG + 100 MG + 150 MG; 50 MG + 100 MG + 150 MG)
     Route: 065
     Dates: end: 20230310
  2. QUETIAPINE FUMARATE [Suspect]
     Active Substance: QUETIAPINE FUMARATE
     Dosage: UNK, (50 MG + 100 MG + 150 MG; 50 MG + 100 MG + 150 MG)
     Route: 065
     Dates: start: 202304, end: 202304
  3. QUETIAPINE FUMARATE [Suspect]
     Active Substance: QUETIAPINE FUMARATE
     Dosage: UNK, (50 MG + 100 MG + 150 MG; 50 MG + 100 MG + 150 MG)
     Route: 065
     Dates: start: 20230310, end: 202304
  4. QUETIAPINE FUMARATE [Suspect]
     Active Substance: QUETIAPINE FUMARATE
     Dosage: UNK, (50 MG + 100 MG + 150 MG; 50 MG + 100 MG + 150 MG)
     Route: 065
     Dates: start: 20230310
  5. QUETIAPINE FUMARATE [Suspect]
     Active Substance: QUETIAPINE FUMARATE
     Dosage: UNK (50 MG + 100 MG + 150 MG; 50 MG + 100 MG + 150 MG)
     Route: 065
     Dates: start: 202304, end: 20230505
  6. QUETIAPINE FUMARATE [Suspect]
     Active Substance: QUETIAPINE FUMARATE
     Dosage: UNK (50 MG + 100 MG + 150 MG; 50 MG + 100 MG + 150 MG)
     Route: 065
     Dates: start: 20230505
  7. CARBIDOPA\LEVODOPA [Suspect]
     Active Substance: CARBIDOPA\LEVODOPA
     Indication: Parkinson^s disease
     Dosage: UNK, (20 MG + 5 MG/FREQUENCY TEXT: MORN:9.5CC;MAINT:4.8CC/H;EXT:1CC; 20 MG + 5)
     Route: 065
     Dates: start: 20220303
  8. CARBIDOPA\LEVODOPA [Suspect]
     Active Substance: CARBIDOPA\LEVODOPA
     Dosage: UNK, (20 MG + 5 MG/FREQUENCY TEXT: MORN:9.5CC;MAINT:4.8CC/H;EXT:1CC; 20 MG + 5)
     Route: 065
     Dates: end: 202304
  9. CARBIDOPA\LEVODOPA [Suspect]
     Active Substance: CARBIDOPA\LEVODOPA
     Dosage: UNK, (20 MG + 5 MG/FREQUENCY TEXT: MORN:9.5CC; MAINT:4.8CC/H; EXT:1CC; 20 MG + 5)
     Route: 065
     Dates: start: 202304, end: 202304
  10. CARBIDOPA\LEVODOPA [Suspect]
     Active Substance: CARBIDOPA\LEVODOPA
     Dosage: UNK, (20 MG + 5 MG/FREQUENCY TEXT: MORN:9.5CC;MAINT:4.8CC/H;EXT:1CC; 20 MG + 5)
     Route: 065
     Dates: start: 20230428, end: 20230516
  11. CARBIDOPA\LEVODOPA [Suspect]
     Active Substance: CARBIDOPA\LEVODOPA
     Dosage: UNK (20 MG + 5 MG/FREQUENCY TEXT: MORN:9.5CC;MAINT:4.8CC/H;EXT:1CC; 20 MG + 5)
     Route: 065
     Dates: start: 20230516
  12. DIVALPROEX SODIUM [Suspect]
     Active Substance: DIVALPROEX SODIUM
     Indication: Product used for unknown indication
     Dosage: 1 DOSAGE FORM, Q12H (1 DF, BID)
     Route: 048
     Dates: start: 20230428, end: 20230503
  13. MELATONIN [Concomitant]
     Active Substance: MELATONIN
     Indication: Product used for unknown indication
     Dosage: 2 DF, QD
     Route: 065
  14. LYRICA [Concomitant]
     Active Substance: PREGABALIN
     Indication: Product used for unknown indication
     Dosage: UNK UNK, TID
     Route: 065
  15. RIVOTRIL [Concomitant]
     Active Substance: CLONAZEPAM
     Indication: Product used for unknown indication
     Dosage: 0,5MG + 0 + 2MG
     Route: 065
  16. SILODOSIN [Concomitant]
     Active Substance: SILODOSIN
     Indication: Product used for unknown indication
     Dosage: UNK UNK, QD
     Route: 065
  17. AVODART [Concomitant]
     Active Substance: DUTASTERIDE
     Indication: Product used for unknown indication
     Dosage: UNK UNK, QD
     Route: 065
  18. ESCITALOPRAM [Concomitant]
     Active Substance: ESCITALOPRAM OXALATE
     Indication: Product used for unknown indication
     Dosage: UNK UNK, BID
     Route: 065
     Dates: end: 202304

REACTIONS (15)
  - Hallucination, visual [Recovered/Resolved]
  - Hallucination, visual [Not Recovered/Not Resolved]
  - Mania [Not Recovered/Not Resolved]
  - Somnolence [Recovered/Resolved]
  - Somnolence [Recovered/Resolved]
  - Hallucination, auditory [Recovered/Resolved]
  - Hallucination, auditory [Not Recovered/Not Resolved]
  - Persecutory delusion [Recovered/Resolved]
  - Persecutory delusion [Not Recovered/Not Resolved]
  - Agitation [Recovering/Resolving]
  - Agitation [Recovering/Resolving]
  - Euphoric mood [Not Recovered/Not Resolved]
  - Dyskinesia [Recovering/Resolving]
  - Hypotension [Recovered/Resolved]
  - Sleep disorder [Not Recovered/Not Resolved]

NARRATIVE: CASE EVENT DATE: 20230308
